FAERS Safety Report 15609908 (Version 1)
Quarter: 2018Q4

REPORT INFORMATION
  Report Type: Spontaneous
  Country: GB (occurrence: GB)
  Receive Date: 20181113
  Receipt Date: 20181113
  Transmission Date: 20190205
  Serious: Yes (Life-Threatening, Hospitalization, Disabling, Other)
  Sender: FDA-Public Use
  Company Number: GB-ACCORD-091502

PATIENT
  Age: 63 Year
  Sex: Male

DRUGS (15)
  1. COLCHICINE. [Interacting]
     Active Substance: COLCHICINE
     Indication: GOUT
     Route: 048
     Dates: start: 20180524, end: 20180605
  2. ENALAPRIL [Concomitant]
     Active Substance: ENALAPRIL
  3. CARBOMER 980 [Concomitant]
     Active Substance: CARBOMER HOMOPOLYMER TYPE C (ALLYL PENTAERYTHRITOL CROSSLINKED)
  4. SULFASALAZINE. [Concomitant]
     Active Substance: SULFASALAZINE
  5. PREDNISOLONE. [Concomitant]
     Active Substance: PREDNISOLONE
  6. LANSOPRAZOLE. [Concomitant]
     Active Substance: LANSOPRAZOLE
  7. ALLOPURINOL. [Concomitant]
     Active Substance: ALLOPURINOL
  8. ETORICOXIB. [Concomitant]
     Active Substance: ETORICOXIB
  9. FELODIPINE. [Concomitant]
     Active Substance: FELODIPINE
  10. ATORVASTATIN [Concomitant]
     Active Substance: ATORVASTATIN
  11. METFORMIN [Concomitant]
     Active Substance: METFORMIN HYDROCHLORIDE
  12. METHOTREXATE. [Suspect]
     Active Substance: METHOTREXATE
     Indication: RHEUMATOID ARTHRITIS
     Route: 058
     Dates: start: 201406, end: 20180605
  13. DABIGATRAN [Concomitant]
     Active Substance: DABIGATRAN
  14. CODEINE PHOSPHATE/PARACETAMOL [Concomitant]
  15. BISOPROLOL [Concomitant]
     Active Substance: BISOPROLOL

REACTIONS (15)
  - Mouth ulceration [Recovered/Resolved]
  - Thrombocytopenia [Recovered/Resolved]
  - Neutropenia [Recovered/Resolved]
  - Confusional state [Not Recovered/Not Resolved]
  - Cytopenia [Recovered/Resolved]
  - Herpes zoster [Recovered/Resolved]
  - Delirium [Recovered/Resolved]
  - Neutropenic sepsis [Recovered/Resolved]
  - Blood pressure systolic decreased [Recovered/Resolved]
  - White blood cell count decreased [Recovered/Resolved]
  - Diarrhoea [Recovered/Resolved]
  - Liver function test abnormal [Recovered/Resolved]
  - Rash vesicular [Recovered/Resolved]
  - Drug interaction [Unknown]
  - Pneumonia [Recovered/Resolved]

NARRATIVE: CASE EVENT DATE: 20180604
